FAERS Safety Report 9943069 (Version 1)
Quarter: 2014Q1

REPORT INFORMATION
  Report Type: Spontaneous
  Country: BR (occurrence: BR)
  Receive Date: 20140303
  Receipt Date: 20140303
  Transmission Date: 20141002
  Serious: Yes (Other)
  Sender: FDA-Public Use
  Company Number: BR-PFIZER INC-2014060107

PATIENT
  Sex: Female

DRUGS (2)
  1. PRISTIQ [Suspect]
     Dosage: 100 MG, UNK
     Route: 048
  2. PRISTIQ [Suspect]
     Dosage: 2 TABLETS STRENGTH 50 MG A DAY
     Route: 048

REACTIONS (2)
  - Drug dependence [Unknown]
  - Drug ineffective [Unknown]
